FAERS Safety Report 5525198-3 (Version None)
Quarter: 2007Q4

REPORT INFORMATION
  Report Type: 
  Country: None (occurrence: None)
  Receive Date: 20071119
  Receipt Date: 20071031
  Transmission Date: 20080405
  Serious: Yes (Hospitalization)
  Sender: FDA-Public Use
  Company Number: MK-6036551

PATIENT
  Age: 72 Year
  Sex: Female

DRUGS (7)
  1. MINAX (METOPROLOL TARTRATE) (50 MG) [Suspect]
     Indication: HYPERTENSION
     Dosage: 50 MG; DAILY; ORAL
     Route: 048
     Dates: start: 20070801, end: 20070901
  2. KARVEA [Concomitant]
  3. PROZAC /00724401/ [Concomitant]
  4. ENDEP [Concomitant]
  5. GINKO BILOBA [Concomitant]
  6. LUTIRE [Concomitant]
  7. THYRO-CO [Concomitant]

REACTIONS (9)
  - BLOOD PRESSURE FLUCTUATION [None]
  - CARDIAC STRESS TEST ABNORMAL [None]
  - FALL [None]
  - FEELING ABNORMAL [None]
  - HEAD INJURY [None]
  - HEART RATE ABNORMAL [None]
  - HEART RATE DECREASED [None]
  - LOSS OF CONSCIOUSNESS [None]
  - NECK INJURY [None]
